FAERS Safety Report 6587838-X (Version None)
Quarter: 2010Q1

REPORT INFORMATION
  Report Type: 
  Country: None (occurrence: None)
  Receive Date: 20100218
  Receipt Date: 20100216
  Transmission Date: 20100710
  Serious: Yes (Life-Threatening)
  Sender: FDA-Public Use
  Company Number: PHHO2010PL01688

PATIENT
  Sex: Male
  Weight: 92 kg

DRUGS (8)
  1. BLINDED ALISKIREN ALI+TAB+CF [Suspect]
     Indication: CARDIAC FAILURE
     Dosage: NO TREATMENT
  2. BLINDED ENALAPRIL COMP-ENA+ [Suspect]
     Indication: CARDIAC FAILURE
     Dosage: NO TREATMENT
  3. BLINDED NO TREATMENT RECEIVED NOMED [Suspect]
     Indication: CARDIAC FAILURE
     Dosage: NO TREATMENT
  4. COMPARATOR ENALAPRIL [Suspect]
     Indication: CARDIAC FAILURE
     Dosage: 10 MG, BID
     Route: 048
     Dates: start: 20100126, end: 20100129
  5. FUROSEMIDE [Concomitant]
     Indication: CARDIAC FAILURE CHRONIC
  6. DIGOXIN [Concomitant]
     Indication: CARDIAC FAILURE CHRONIC
  7. CARVEDILOL [Concomitant]
     Indication: CARDIAC FAILURE CHRONIC
  8. SPIRONOLACTONE [Concomitant]

REACTIONS (1)
  - HYPERKALAEMIA [None]
